FAERS Safety Report 6812526-1 (Version None)
Quarter: 2010Q3

REPORT INFORMATION
  Report Type: 
  Country: None (occurrence: None)
  Receive Date: 20100701
  Receipt Date: 20100618
  Transmission Date: 20110219
  Serious: Yes (Other)
  Sender: FDA-Public Use
  Company Number: US-PFIZER INC-2010007461

PATIENT
  Sex: Female
  Weight: 77 kg

DRUGS (5)
  1. CHANTIX [Suspect]
     Indication: SMOKING CESSATION THERAPY
     Dosage: 1 MG, 2X/DAY
     Route: 048
     Dates: start: 20100115, end: 20100419
  2. CARBAMAZEPINE [Concomitant]
     Indication: EPILEPSY
     Dosage: FREQUENCY: 2X/DAY,
     Route: 048
  3. TEGRETOL [Concomitant]
     Indication: CONVULSION
     Dosage: UNK
  4. SYNTHROID [Concomitant]
     Indication: THYROID DISORDER
     Dosage: UNK
  5. LEVOXYL [Concomitant]

REACTIONS (2)
  - MOOD ALTERED [None]
  - WHITE BLOOD CELL COUNT DECREASED [None]
